FAERS Safety Report 4693572-3 (Version None)
Quarter: 2005Q2

REPORT INFORMATION
  Report Type: 
  Country: None (occurrence: None)
  Receive Date: 20050617
  Receipt Date: 20050607
  Transmission Date: 20051028
  Serious: Yes (Hospitalization)
  Sender: FDA-Public Use
  Company Number: FR-ROCHE-406829

PATIENT
  Age: 63 Year
  Sex: Male

DRUGS (8)
  1. XELODA [Suspect]
     Dosage: GIVEN ON DAYS 1 - 14.
     Route: 048
     Dates: start: 20050330, end: 20050412
  2. ERBITUX [Suspect]
     Dosage: GIVEN ON DAY 1, 8 AND 15.
     Route: 042
     Dates: start: 20050330, end: 20050413
  3. CAMPTO [Suspect]
     Dosage: GIVEN ON DAY 1 PER CYCLE.
     Route: 042
     Dates: start: 20050330, end: 20050330
  4. DAONIL [Concomitant]
  5. CORVASAL [Concomitant]
  6. 1 CONCOMITANT UNSPECIFIED DRUG [Concomitant]
  7. TRIATEC 5 [Concomitant]
  8. PLAVIX [Concomitant]

REACTIONS (8)
  - DIARRHOEA [None]
  - HYPOCALCAEMIA [None]
  - HYPOGLYCAEMIA [None]
  - HYPOKALAEMIA [None]
  - HYPOPHOSPHATAEMIA [None]
  - HYPOPROTEINAEMIA [None]
  - RHABDOMYOLYSIS [None]
  - VOMITING [None]
